FAERS Safety Report 5078237-0 (Version None)
Quarter: 2006Q3

REPORT INFORMATION
  Report Type: 
  Country: None (occurrence: None)
  Receive Date: 20060811
  Receipt Date: 20060505
  Transmission Date: 20061208
  Serious: Yes (Hospitalization)
  Sender: FDA-Public Use
  Company Number: US-AVENTIS-200614076US

PATIENT
  Sex: Female
  Weight: 66.36 kg

DRUGS (6)
  1. ALLEGRA-D 12 HOUR [Suspect]
     Indication: ASTHMA
     Dosage: DOSE: UNK
     Dates: start: 20060220, end: 20060530
  2. ALLEGRA-D 12 HOUR [Suspect]
     Dosage: DOSE: UNK
     Dates: start: 20060606, end: 20060701
  3. THEOPHYLLINE [Concomitant]
  4. SINGULAIR [Concomitant]
  5. ADVAIR DISKUS 100/50 [Concomitant]
  6. ALLEGRA-D 12 HOUR [Concomitant]

REACTIONS (6)
  - ABNORMAL FAECES [None]
  - CHOLELITHIASIS [None]
  - DIARRHOEA [None]
  - INFECTION [None]
  - JAUNDICE [None]
  - MUCOUS STOOLS [None]
